FAERS Safety Report 10850884 (Version 1)
Quarter: 2015Q1

REPORT INFORMATION
  Report Type: Spontaneous
  Country: US (occurrence: US)
  Receive Date: 20150222
  Receipt Date: 20150222
  Transmission Date: 20150721
  Serious: No
  Sender: FDA-Public Use
  Company Number: US-ALLERGAN-1406973US

PATIENT
  Age: 43 Year
  Sex: Female

DRUGS (2)
  1. BOTOX COSMETIC [Suspect]
     Active Substance: ONABOTULINUMTOXINA
     Indication: SKIN WRINKLING
  2. BOTOX COSMETIC [Suspect]
     Active Substance: ONABOTULINUMTOXINA
     Indication: SKIN WRINKLING
     Dosage: UNK, SINGLE
     Route: 030

REACTIONS (10)
  - Swelling face [Unknown]
  - Facial paresis [Unknown]
  - General physical condition abnormal [Not Recovered/Not Resolved]
  - Eyelid oedema [Unknown]
  - Depressed level of consciousness [Unknown]
  - Choking sensation [Unknown]
  - Eye pain [Unknown]
  - Dyspnoea [Unknown]
  - Erythema [Unknown]
  - Sinus disorder [Unknown]

NARRATIVE: CASE EVENT DATE: 20140406
